FAERS Safety Report 13265946 (Version 1)
Quarter: 2017Q1

REPORT INFORMATION
  Report Type: Spontaneous
  Country: US (occurrence: US)
  Receive Date: 20170223
  Receipt Date: 20170223
  Transmission Date: 20170428
  Serious: Yes (Other)
  Sender: FDA-Public Use
  Company Number: US-LANTHEUS-LMI-2016-00174

PATIENT
  Age: 56 Year
  Sex: Male
  Weight: 277 kg

DRUGS (1)
  1. DEFINITY [Suspect]
     Active Substance: PERFLUTREN
     Indication: ECHOCARDIOGRAM
     Dosage: A TOTAL OF 8 ML DILUTED DEFINITY (1.5 ML DEFINITY DILUTED IN 8.5 ML NORMAL SALINE)
     Route: 040
     Dates: start: 20160329, end: 20160329

REACTIONS (9)
  - Dizziness [Recovered/Resolved]
  - Rash generalised [Recovered/Resolved]
  - Ventricular tachycardia [Recovered/Resolved]
  - Acute respiratory failure [Recovered/Resolved]
  - Urticaria [Recovered/Resolved]
  - Ventricular extrasystoles [Recovered/Resolved]
  - Flushing [Recovered/Resolved]
  - Hypersensitivity [Recovered/Resolved]
  - Chest discomfort [Recovered/Resolved]

NARRATIVE: CASE EVENT DATE: 20160329
